FAERS Safety Report 19301133 (Version 1)
Quarter: 2021Q2

REPORT INFORMATION
  Report Type: Report from Study
  Country: CN (occurrence: CN)
  Receive Date: 20210524
  Receipt Date: 20210524
  Transmission Date: 20210717
  Serious: Yes (Hospitalization)
  Sender: FDA-Public Use
  Company Number: CN-MACROGENICS-2021000124

PATIENT
  Age: 72 Year
  Sex: Female
  Weight: 72 kg

DRUGS (26)
  1. APREPITANT. [Concomitant]
     Active Substance: APREPITANT
     Dosage: 80 MILLIGRAM, Q24HR
     Route: 065
     Dates: start: 20210325, end: 20210326
  2. GEFARNATE [Concomitant]
     Active Substance: GEFARNATE
     Indication: GASTROOESOPHAGEAL REFLUX DISEASE
     Dosage: 100 MILLIGRAM, Q24HR
     Route: 048
     Dates: start: 20210305, end: 20210305
  3. DIPHENHYDRAMINE HYDROCHLORIDE. [Concomitant]
     Active Substance: DIPHENHYDRAMINE HYDROCHLORIDE
     Dosage: 40 MILLIGRAM, QD
     Route: 030
     Dates: start: 20210302, end: 20210302
  4. PALONOSETRON HYDROCHLORIDE. [Concomitant]
     Active Substance: PALONOSETRON HYDROCHLORIDE
     Dosage: 0.25 MILLIGRAM, QD
     Route: 042
     Dates: start: 20210302, end: 20210302
  5. TEBOTELIMAB. [Suspect]
     Active Substance: TEBOTELIMAB
     Indication: GASTRIC CANCER
     Dosage: 600 MILLIGRAM, Q3WEEKS
     Route: 042
     Dates: start: 20210119, end: 20210119
  6. OXALIPLATIN. [Concomitant]
     Active Substance: OXALIPLATIN
     Dosage: 130 MILLIGRAM/SQ METER
     Route: 042
     Dates: start: 20210302, end: 20210302
  7. ESOMEPRAZOLE SODIUM. [Concomitant]
     Active Substance: ESOMEPRAZOLE SODIUM
     Indication: PREMEDICATION
     Dosage: 40 MILLIGRAM, QD
     Route: 042
     Dates: start: 20210209, end: 20210209
  8. APREPITANT. [Concomitant]
     Active Substance: APREPITANT
     Dosage: 125 MILLIGRAM, Q24HR
     Route: 065
     Dates: start: 20210302, end: 20210302
  9. DIPHENHYDRAMINE HYDROCHLORIDE. [Concomitant]
     Active Substance: DIPHENHYDRAMINE HYDROCHLORIDE
     Indication: PREMEDICATION
     Dosage: 40 MILLIGRAM, QD
     Route: 030
     Dates: start: 20210209, end: 20210209
  10. FAMOTIDINE. [Concomitant]
     Active Substance: FAMOTIDINE
     Dosage: 40 MILLIGRAM, QD
     Route: 042
     Dates: start: 20210302, end: 20210302
  11. PALONOSETRON HYDROCHLORIDE. [Concomitant]
     Active Substance: PALONOSETRON HYDROCHLORIDE
     Indication: PREMEDICATION
     Dosage: 0.25 MILLIGRAM, QD
     Route: 042
     Dates: start: 20210209, end: 20210209
  12. APREPITANT. [Concomitant]
     Active Substance: APREPITANT
     Dosage: 80 MILLIGRAM, Q24HR
     Route: 048
     Dates: start: 20210210, end: 20210211
  13. TEBOTELIMAB. [Suspect]
     Active Substance: TEBOTELIMAB
     Dosage: 600 MILLIGRAM, Q3WEEKS
     Route: 042
     Dates: start: 20210302, end: 20210302
  14. ESOMEPRAZOLE SODIUM. [Concomitant]
     Active Substance: ESOMEPRAZOLE SODIUM
     Indication: GASTROOESOPHAGEAL REFLUX DISEASE
     Dosage: 40 MILLIGRAM, QD
     Route: 042
     Dates: start: 20210302, end: 20210302
  15. ESOMEPRAZOLE SODIUM. [Concomitant]
     Active Substance: ESOMEPRAZOLE SODIUM
     Dosage: 20 MILLIGRAM, BID
     Route: 048
     Dates: start: 20210305, end: 20210316
  16. POTASSIUM CHLORIDE. [Concomitant]
     Active Substance: POTASSIUM CHLORIDE
     Indication: HYPOKALAEMIA
     Dosage: 1 GRAM, TID
     Route: 048
     Dates: start: 20210302, end: 20210312
  17. MARGETUXIMAB. [Suspect]
     Active Substance: MARGETUXIMAB
     Indication: GASTRIC CANCER
     Dosage: 15 MILLIGRAM/KILOGRAM, Q3WEEKS
     Route: 042
     Dates: start: 20210119, end: 20210119
  18. MARGETUXIMAB. [Suspect]
     Active Substance: MARGETUXIMAB
     Dosage: 15 MILLIGRAM/KILOGRAM, Q3WEEKS
     Route: 042
     Dates: start: 20210302, end: 20210302
  19. OXALIPLATIN. [Concomitant]
     Active Substance: OXALIPLATIN
     Indication: GASTRIC CANCER
     Dosage: 130 MILLIGRAM/SQ METER
     Route: 042
     Dates: start: 20210119, end: 20210119
  20. CAPECITABINE. [Concomitant]
     Active Substance: CAPECITABINE
     Indication: GASTRIC CANCER
     Dosage: 2000 MILLIGRAM/SQ METER
     Route: 048
     Dates: start: 20210119, end: 20210202
  21. APREPITANT. [Concomitant]
     Active Substance: APREPITANT
     Indication: PREMEDICATION
     Dosage: 125 MILLIGRAM, QD
     Route: 048
     Dates: start: 20210209, end: 20210209
  22. INDAPAMIDE. [Concomitant]
     Active Substance: INDAPAMIDE
     Indication: HYPERTENSION
     Dosage: 2.5 MILLIGRAM, QD
     Route: 048
     Dates: start: 20100101
  23. POTASSIUM CHLORIDE. [Concomitant]
     Active Substance: POTASSIUM CHLORIDE
     Dosage: 2 GRAM, TID
     Route: 048
     Dates: start: 20210313, end: 20210324
  24. CAPECITABINE. [Concomitant]
     Active Substance: CAPECITABINE
     Dosage: 2000 MILLIGRAM/SQ METER
     Route: 048
     Dates: start: 20210303, end: 20210316
  25. BETAHISTINE MESILATE [Concomitant]
     Active Substance: BETAHISTINE MESILATE
     Indication: DIZZINESS
     Dosage: 10 MILLIGRAM, Q24HR
     Route: 048
     Dates: start: 20210303, end: 20210303
  26. FAMOTIDINE. [Concomitant]
     Active Substance: FAMOTIDINE
     Indication: PREMEDICATION
     Dosage: 40 MILLIGRAM, QD
     Route: 042
     Dates: start: 20210209, end: 20210209

REACTIONS (1)
  - Immune-mediated lung disease [Not Recovered/Not Resolved]

NARRATIVE: CASE EVENT DATE: 20210303
